FAERS Safety Report 10189110 (Version 1)
Quarter: 2014Q2

REPORT INFORMATION
  Report Type: Spontaneous
  Country: FR (occurrence: FR)
  Receive Date: 20140522
  Receipt Date: 20140522
  Transmission Date: 20141212
  Serious: Yes (Other)
  Sender: FDA-Public Use
  Company Number: FR-JNJFOC-20140508398

PATIENT
  Age: 6 Decade
  Sex: Female

DRUGS (1)
  1. HALDOL DECANOATE [Suspect]
     Indication: PSYCHOTIC DISORDER
     Dosage: 4 AMPOULES. TREATED FOR ATLEAST 5 YEARS.
     Route: 030
     Dates: end: 20140513

REACTIONS (1)
  - Myocardial infarction [Unknown]
